FAERS Safety Report 13393981 (Version 3)
Quarter: 2022Q2

REPORT INFORMATION
  Report Type: Spontaneous
  Country: CH (occurrence: CH)
  Receive Date: 20170331
  Receipt Date: 20220531
  Transmission Date: 20220721
  Serious: Yes (Disabling, Congenital Anomaly, Other)
  Sender: FDA-Public Use
  Company Number: CH-ABBVIE-17P-151-1926457-00

PATIENT
  Sex: Male

DRUGS (1)
  1. VALPROATE SODIUM [Suspect]
     Active Substance: VALPROATE SODIUM
     Indication: Maternal exposure timing unspecified
     Route: 064

REACTIONS (12)
  - Neurodevelopmental disorder [Not Recovered/Not Resolved]
  - Hypotonia [Unknown]
  - Frustration tolerance decreased [Unknown]
  - Intentional self-injury [Unknown]
  - Respiratory disorder [Unknown]
  - Deformity thorax [Unknown]
  - Disturbance in social behaviour [Unknown]
  - Foetal exposure during pregnancy [Unknown]
  - Foetal anticonvulsant syndrome [Not Recovered/Not Resolved]
  - Dysmorphism [Unknown]
  - Autism spectrum disorder [Unknown]
  - Congenital musculoskeletal disorder of spine [Unknown]

NARRATIVE: CASE EVENT DATE: 20030101
